FAERS Safety Report 22613569 (Version 1)
Quarter: 2023Q2

REPORT INFORMATION
  Report Type: Spontaneous
  Country: US (occurrence: US)
  Receive Date: 20230619
  Receipt Date: 20230619
  Transmission Date: 20230722
  Serious: No
  Sender: FDA-Public Use
  Company Number: US-002147023-NVSC2023US138995

PATIENT
  Sex: Female

DRUGS (3)
  1. PROMACTA [Suspect]
     Active Substance: ELTROMBOPAG OLAMINE
     Indication: Systemic lupus erythematosus
     Dosage: 50 MG, QD
     Route: 048
     Dates: start: 20220215
  2. PROMACTA [Suspect]
     Active Substance: ELTROMBOPAG OLAMINE
     Indication: Gallbladder cancer
     Dosage: 50 MG, QD
     Route: 048
     Dates: start: 202210
  3. PROMACTA [Suspect]
     Active Substance: ELTROMBOPAG OLAMINE
     Dosage: 75 MG, QD
     Route: 065

REACTIONS (2)
  - Platelet count decreased [Unknown]
  - Product use in unapproved indication [Unknown]
